FAERS Safety Report 23539699 (Version 1)
Quarter: 2024Q1

REPORT INFORMATION
  Report Type: Spontaneous
  Country: US (occurrence: US)
  Receive Date: 20240219
  Receipt Date: 20240219
  Transmission Date: 20240410
  Serious: Yes (Life-Threatening, Hospitalization, Other)
  Sender: FDA-Public Use
  Company Number: US-BRACCO-2023US03041

PATIENT
  Age: 26 Year
  Sex: Female

DRUGS (5)
  1. ISOVUE 370 [Suspect]
     Active Substance: IOPAMIDOL
     Indication: Computerised tomogram abdomen
     Dosage: 100 ML, SINGLE
     Route: 042
     Dates: start: 20230616, end: 20230616
  2. XARELTO [Concomitant]
     Active Substance: RIVAROXABAN
  3. PROZAC [Concomitant]
     Active Substance: FLUOXETINE HYDROCHLORIDE
  4. ATIVAN [Concomitant]
     Active Substance: LORAZEPAM
  5. ZOFRAN [Concomitant]
     Active Substance: ONDANSETRON HYDROCHLORIDE

REACTIONS (1)
  - Anaphylactic reaction [Recovered/Resolved]

NARRATIVE: CASE EVENT DATE: 20230616
